FAERS Safety Report 9737101 (Version 1)
Quarter: 2013Q4

REPORT INFORMATION
  Report Type: Spontaneous
  Country: FR (occurrence: FR)
  Receive Date: 20131206
  Receipt Date: 20131206
  Transmission Date: 20140711
  Serious: Yes (Hospitalization)
  Sender: FDA-Public Use
  Company Number: FR-INCYTE CORPORATION-2013IN002879

PATIENT
  Age: 75 Year
  Sex: Male

DRUGS (9)
  1. JAKAVI [Suspect]
     Indication: MYELOFIBROSIS
     Dosage: 15 MG, BID
     Route: 048
     Dates: start: 201302, end: 20130313
  2. JAKAVI [Suspect]
     Indication: SPLENOMEGALY
     Dosage: 20 MG, DAILY
     Route: 048
     Dates: start: 20130313, end: 20130321
  3. JAKAVI [Suspect]
     Dosage: 10 MG, DAILY
     Route: 048
     Dates: start: 20130321, end: 201306
  4. JAKAVI [Suspect]
     Dosage: 30 MG, DAILY
     Route: 048
     Dates: start: 201306, end: 20130807
  5. LASILIX [Concomitant]
     Dosage: 40 MG, UNK
  6. LEVOTHYROX [Concomitant]
  7. PERINDOPRIL [Concomitant]
  8. MINISINTROM [Concomitant]
  9. CORDARONE [Concomitant]
     Dosage: 200 MG, UNK

REACTIONS (2)
  - Pancytopenia [Recovered/Resolved]
  - Renal failure [Recovered/Resolved]
